FAERS Safety Report 21453044 (Version 2)
Quarter: 2022Q4

REPORT INFORMATION
  Report Type: Other
  Country: FR (occurrence: FR)
  Receive Date: 20221013
  Receipt Date: 20221222
  Transmission Date: 20230113
  Serious: Yes (Other)
  Sender: FDA-Public Use
  Company Number: FR-002147023-NVSC2022FR221628

PATIENT
  Age: 71 Year
  Sex: Female

DRUGS (2)
  1. RITUXIMAB [Suspect]
     Active Substance: RITUXIMAB
     Indication: Systemic lupus erythematosus
     Route: 065
  2. ALEMTUZUMAB [Suspect]
     Active Substance: ALEMTUZUMAB
     Indication: Systemic lupus erythematosus
     Route: 065

REACTIONS (4)
  - Eye infection toxoplasmal [Recovering/Resolving]
  - Systemic lupus erythematosus [Unknown]
  - Condition aggravated [Unknown]
  - Off label use [Unknown]
